FAERS Safety Report 9769457 (Version 1)
Quarter: 2013Q4

REPORT INFORMATION
  Report Type: Spontaneous
  Country: JP (occurrence: JP)
  Receive Date: 20131218
  Receipt Date: 20131218
  Transmission Date: 20140711
  Serious: Yes (Other)
  Sender: FDA-Public Use
  Company Number: JP-ASTELLAS-2013JP013915

PATIENT
  Sex: Female

DRUGS (2)
  1. PROGRAF [Suspect]
     Dosage: 2 MG, UNKNOWN/D
     Route: 048
  2. METHOTREXATE [Concomitant]
     Dosage: 8 MG, UNKNOWN/D
     Route: 048

REACTIONS (2)
  - Diabetes mellitus [Not Recovered/Not Resolved]
  - Cataract [Not Recovered/Not Resolved]
